FAERS Safety Report 15745465 (Version 1)
Quarter: 2018Q4

REPORT INFORMATION
  Report Type: Spontaneous
  Country: US (occurrence: US)
  Receive Date: 20181205
  Receipt Date: 20181205
  Transmission Date: 20190205
  Serious: No
  Sender: FDA-Public Use
  Company Number: None

PATIENT
  Sex: Female

DRUGS (1)
  1. IBRANCE [Suspect]
     Active Substance: PALBOCICLIB
     Indication: BREAST CANCER FEMALE
     Dosage: DAILY X21 D OJ 7?OFF?
     Route: 048
     Dates: start: 20170711

REACTIONS (6)
  - Dizziness [None]
  - Chills [None]
  - Pyrexia [None]
  - Blood urine present [None]
  - Headache [None]
  - Hyperhidrosis [None]
